FAERS Safety Report 8104216-2 (Version None)
Quarter: 2012Q1

REPORT INFORMATION
  Report Type: 
  Country: None (occurrence: None)
  Receive Date: 20120201
  Receipt Date: 20120125
  Transmission Date: 20120608
  Serious: Yes (Hospitalization, Other)
  Sender: FDA-Public Use
  Company Number: US-PFIZER INC-2012021203

PATIENT
  Sex: Male
  Weight: 79.365 kg

DRUGS (4)
  1. LITHIUM [Concomitant]
     Indication: EPILEPSY
     Dosage: UNK
  2. METOPROLOL [Concomitant]
     Indication: HYPERTENSION
     Dosage: 10 MG, 1X/DAY
  3. CHANTIX [Suspect]
     Dosage: 0.5 MG, 1X/DAY
     Dates: start: 20120124
  4. CHANTIX [Suspect]
     Indication: SMOKING CESSATION THERAPY
     Dosage: 0.5 MG, 1X/DAY
     Dates: start: 20090101

REACTIONS (6)
  - HYPERTENSION [None]
  - FEELING ABNORMAL [None]
  - FRUSTRATION [None]
  - NERVE INJURY [None]
  - CONVULSION [None]
  - ONYCHOPHAGIA [None]
